FAERS Safety Report 11100344 (Version 1)
Quarter: 2015Q2

REPORT INFORMATION
  Report Type: Spontaneous
  Country: US (occurrence: None)
  Receive Date: 20150507
  Receipt Date: 20150507
  Transmission Date: 20150821
  Serious: No
  Sender: FDA-Public Use
  Company Number: None

PATIENT
  Age: 36 Year
  Sex: Female
  Weight: 48.99 kg

DRUGS (4)
  1. ARMOUR THRYOID 75MG [Concomitant]
  2. KENALOG [Suspect]
     Active Substance: TRIAMCINOLONE ACETONIDE
     Indication: NERVE COMPRESSION
  3. KENALOG [Suspect]
     Active Substance: TRIAMCINOLONE ACETONIDE
  4. MULTIVITAMIN [Concomitant]
     Active Substance: VITAMINS

REACTIONS (1)
  - Injection site atrophy [None]

NARRATIVE: CASE EVENT DATE: 20150225
